FAERS Safety Report 18419771 (Version 4)
Quarter: 2022Q1

REPORT INFORMATION
  Report Type: Spontaneous
  Country: CA (occurrence: CA)
  Receive Date: 20201023
  Receipt Date: 20220122
  Transmission Date: 20220423
  Serious: Yes (Other)
  Sender: FDA-Public Use
  Company Number: CA-SAMSUNG BIOEPIS-SB-2020-32124

PATIENT
  Age: 59 Year
  Sex: Female
  Weight: 83 kg

DRUGS (6)
  1. INFLIXIMAB [Suspect]
     Active Substance: INFLIXIMAB
     Indication: Colitis ulcerative
     Route: 042
  2. CORTIFOAM [Concomitant]
     Active Substance: HYDROCORTISONE ACETATE
     Indication: Colitis ulcerative
     Dosage: UNKNOWN, AEROSOL FOAM
     Route: 065
  3. MESALAMINE [Concomitant]
     Active Substance: MESALAMINE
     Indication: Colitis ulcerative
     Route: 048
  4. MESALAMINE [Concomitant]
     Active Substance: MESALAMINE
     Dosage: UNKNOWN
     Route: 054
  5. MESALAMINE [Concomitant]
     Active Substance: MESALAMINE
     Dosage: UNKNOWN
     Route: 054
  6. PREDNISONE [Concomitant]
     Active Substance: PREDNISONE
     Indication: Colitis ulcerative
     Route: 048

REACTIONS (8)
  - Body temperature decreased [Recovered/Resolved]
  - Condition aggravated [Recovered/Resolved]
  - Faecal calprotectin increased [Recovered/Resolved]
  - Drug ineffective [Recovered/Resolved]
  - Drug level below therapeutic [Recovered/Resolved]
  - Inappropriate schedule of product administration [Recovered/Resolved]
  - Off label use [Recovered/Resolved]
  - Product use issue [Recovered/Resolved]
